FAERS Safety Report 11333134 (Version 1)
Quarter: 2015Q3

REPORT INFORMATION
  Report Type: Spontaneous
  Country: US (occurrence: US)
  Receive Date: 20150803
  Receipt Date: 20150803
  Transmission Date: 20151125
  Serious: No
  Sender: FDA-Public Use
  Company Number: US-ELI_LILLY_AND_COMPANY-US200710003252

PATIENT
  Age: 54 Year
  Sex: Female

DRUGS (5)
  1. ZYPREXA ZYDIS [Suspect]
     Active Substance: OLANZAPINE
     Indication: BIPOLAR DISORDER
     Dosage: 5 MG, EACH EVENING
     Route: 048
     Dates: start: 200710
  2. KEPPRA [Concomitant]
     Active Substance: LEVETIRACETAM
  3. WELLBUTRIN XL [Concomitant]
     Active Substance: BUPROPION HYDROCHLORIDE
  4. ZYPREXA [Suspect]
     Active Substance: OLANZAPINE
  5. LITHIUM. [Concomitant]
     Active Substance: LITHIUM

REACTIONS (1)
  - Peripheral sensory neuropathy [Not Recovered/Not Resolved]

NARRATIVE: CASE EVENT DATE: 20071003
